FAERS Safety Report 8312506-3 (Version None)
Quarter: 2012Q2

REPORT INFORMATION
  Report Type: 
  Country: None (occurrence: None)
  Receive Date: 20120425
  Receipt Date: 20120419
  Transmission Date: 20120825
  Serious: Yes (Disabling)
  Sender: FDA-Public Use
  Company Number: US-MERCK-1204USA02910

PATIENT
  Sex: Male

DRUGS (2)
  1. FOSAMAX [Suspect]
     Route: 048
     Dates: start: 20020101, end: 20080101
  2. FOSAMAX [Suspect]
     Route: 048
     Dates: start: 20020101, end: 20080101

REACTIONS (2)
  - FEMUR FRACTURE [None]
  - BONE DISORDER [None]
